FAERS Safety Report 11418629 (Version 1)
Quarter: 2015Q3

REPORT INFORMATION
  Report Type: Spontaneous
  Country: FR (occurrence: FR)
  Receive Date: 20150826
  Receipt Date: 20150826
  Transmission Date: 20151125
  Serious: Yes (Hospitalization)
  Sender: FDA-Public Use
  Company Number: FR-009507513-1508FRA008041

PATIENT
  Age: 67 Year
  Sex: Female

DRUGS (8)
  1. VOLTARENE [Suspect]
     Active Substance: DICLOFENAC SODIUM
     Dosage: SUSTAINED RELEASE COATED TABLET, 1 DOSE DAILY, STRENGTH: 100 MG
     Route: 048
     Dates: start: 2011
  2. TRAMADOL HYDROCHLORIDE. [Concomitant]
     Active Substance: TRAMADOL HYDROCHLORIDE
     Dosage: 100 MG TWICE DAILY
     Route: 048
  3. CRESTOR [Suspect]
     Active Substance: ROSUVASTATIN CALCIUM
     Dosage: 1 DOSE DAILY, STRENGTH: 5 MG
     Route: 048
     Dates: end: 2015
  4. COZAAR [Suspect]
     Active Substance: LOSARTAN POTASSIUM
     Dosage: SCORED COATED TABLET, 1 DOSE DAILY, STRENGTH: 50 MG
     Route: 048
     Dates: end: 2015
  5. VOLTARENE [Suspect]
     Active Substance: DICLOFENAC SODIUM
     Dosage: UNK, INCREASE IN DOSE FROM AN OCCASIONAL INTAKE TO A DAILY INTAKE
     Route: 048
     Dates: start: 201502, end: 2015
  6. LAMALINE [Suspect]
     Active Substance: ACETAMINOPHEN\CAFFEINE\OPIUM
     Dosage: 1 DOSE TWICE DAILY
     Route: 054
     Dates: end: 2015
  7. KARDEGIC [Suspect]
     Active Substance: ASPIRIN LYSINE
     Dosage: POWDER FOR ORAL SOLUTION IN A SINGLE SERVING SACHET, 1 DOSE DAILY, STRENGTH: 75 MG
     Route: 048
     Dates: start: 201503, end: 2015
  8. UVEDOSE [Concomitant]
     Active Substance: CHOLECALCIFEROL
     Dosage: ORAL SOLUTION IN AMPOULE
     Route: 048

REACTIONS (2)
  - Anaemia [Recovering/Resolving]
  - Peptic ulcer haemorrhage [Recovered/Resolved]

NARRATIVE: CASE EVENT DATE: 20150630
